FAERS Safety Report 9487754 (Version 2)
Quarter: 2013Q3

REPORT INFORMATION
  Report Type: Spontaneous
  Country: US (occurrence: US)
  Receive Date: 20130725
  Receipt Date: 20130725
  Transmission Date: 20140515
  Serious: No
  Sender: FDA-Public Use
  Company Number: US-GLAXOSMITHKLINE-A0899245A

PATIENT
  Age: 59 Year
  Sex: Female

DRUGS (1)
  1. AVANDIA [Suspect]
     Indication: DIABETES MELLITUS
     Route: 048
     Dates: start: 200103, end: 2008

REACTIONS (6)
  - Cardiac murmur [Recovering/Resolving]
  - Hyperlipidaemia [Unknown]
  - Dyslipidaemia [Unknown]
  - Hypertension [Unknown]
  - Chest pain [Unknown]
  - Cardiac disorder [Unknown]
